FAERS Safety Report 12036520 (Version 1)
Quarter: 2016Q1

REPORT INFORMATION
  Report Type: Report from Study
  Country: US (occurrence: US)
  Receive Date: 20160207
  Receipt Date: 20160207
  Transmission Date: 20160526
  Serious: No
  Sender: FDA-Public Use
  Company Number: US-ABBVIE-15K-163-1523854-00

PATIENT
  Age: 37 Year
  Sex: Male

DRUGS (1)
  1. HUMIRA [Suspect]
     Active Substance: ADALIMUMAB
     Indication: PSORIASIS
     Dosage: LOADING DOSE/DAY ONE
     Route: 058
     Dates: start: 20151211, end: 20151211

REACTIONS (3)
  - Aggression [Unknown]
  - Depressed mood [Unknown]
  - Mood swings [Unknown]

NARRATIVE: CASE EVENT DATE: 201512
